FAERS Safety Report 7633994-1 (Version None)
Quarter: 2011Q3

REPORT INFORMATION
  Report Type: 
  Country: None (occurrence: None)
  Receive Date: 20110725
  Receipt Date: 20110721
  Transmission Date: 20111222
  Serious: Yes (Death)
  Sender: FDA-Public Use
  Company Number: JP-ASTRAZENECA-2011SE43319

PATIENT
  Age: 35 Year
  Sex: Male

DRUGS (1)
  1. XYLOCAINE [Suspect]
     Dosage: DOSE UNKNOWN
     Route: 065
     Dates: start: 20100201, end: 20100301

REACTIONS (1)
  - ANAPHYLACTIC SHOCK [None]
